FAERS Safety Report 25779444 (Version 1)
Quarter: 2025Q3

REPORT INFORMATION
  Report Type: Spontaneous
  Country: US (occurrence: US)
  Receive Date: 20250909
  Receipt Date: 20250909
  Transmission Date: 20251020
  Serious: Yes (Other)
  Sender: Kenvue
  Company Number: US-KENVUE-20250901695

PATIENT
  Age: 6 Month
  Sex: Male

DRUGS (2)
  1. TYLENOL [Suspect]
     Active Substance: ACETAMINOPHEN
     Indication: Pyrexia
     Route: 065
  2. TYLENOL [Suspect]
     Active Substance: ACETAMINOPHEN
     Indication: Nasopharyngitis

REACTIONS (2)
  - Autism spectrum disorder [Unknown]
  - Quadriplegia [Unknown]
